FAERS Safety Report 25504686 (Version 1)
Quarter: 2025Q3

REPORT INFORMATION
  Report Type: Spontaneous
  Country: US (occurrence: US)
  Receive Date: 20250702
  Receipt Date: 20250702
  Transmission Date: 20251021
  Serious: No
  Sender: EISAI
  Company Number: US-Eisai-EC-2025-192364

PATIENT
  Age: 79 Year
  Sex: Male

DRUGS (2)
  1. LEQEMBI [Suspect]
     Active Substance: LECANEMAB-IRMB
     Indication: Cognitive disorder
     Dates: start: 202405, end: 202411
  2. LEQEMBI [Suspect]
     Active Substance: LECANEMAB-IRMB
     Dates: start: 202412, end: 202412

REACTIONS (1)
  - Coronary artery disease [Unknown]

NARRATIVE: CASE EVENT DATE: 20250101
